FAERS Safety Report 14426195 (Version 9)
Quarter: 2019Q2

REPORT INFORMATION
  Report Type: Report from Study
  Country: US (occurrence: US)
  Receive Date: 20180123
  Receipt Date: 20190502
  Transmission Date: 20190711
  Serious: Yes (Hospitalization)
  Sender: FDA-Public Use
  Company Number: US-ACTELION-A-NJ2016-130804

PATIENT
  Sex: Female
  Weight: 59.41 kg

DRUGS (6)
  1. VELETRI [Suspect]
     Active Substance: EPOPROSTENOL
     Dosage: 26 NG/KG, PER MIN
     Route: 042
     Dates: start: 20141210
  2. AMLODIPINE [Concomitant]
     Active Substance: AMLODIPINE BESYLATE
  3. VELETRI [Suspect]
     Active Substance: EPOPROSTENOL
     Dosage: 27.1 NG/KG, PER MIN
     Route: 042
  4. VELETRI [Suspect]
     Active Substance: EPOPROSTENOL
     Dosage: UNK
     Route: 042
  5. VELETRI [Suspect]
     Active Substance: EPOPROSTENOL
     Indication: PULMONARY ARTERIAL HYPERTENSION
     Dosage: 34 NG/KG, PER MIN
     Route: 042
  6. ADCIRCA [Concomitant]
     Active Substance: TADALAFIL

REACTIONS (21)
  - Gallbladder operation [Unknown]
  - Pain in jaw [Unknown]
  - Chest pain [Unknown]
  - Pericardial effusion [Recovered/Resolved]
  - Sinusitis [Not Recovered/Not Resolved]
  - Fall [Unknown]
  - Device connection issue [Unknown]
  - Dyspepsia [Unknown]
  - Right ventricular failure [Unknown]
  - Fluid retention [Unknown]
  - Gallbladder disorder [Unknown]
  - Pain in extremity [Unknown]
  - Walking distance test abnormal [Unknown]
  - Emergency care [Unknown]
  - Nasopharyngitis [Unknown]
  - Dyspnoea [Unknown]
  - Fatigue [Unknown]
  - Oedema [Unknown]
  - Weight decreased [Unknown]
  - Diarrhoea [Unknown]
  - Loss of consciousness [Unknown]
